FAERS Safety Report 4793877-1 (Version None)
Quarter: 2005Q4

REPORT INFORMATION
  Report Type: 
  Country: None (occurrence: None)
  Receive Date: 20051011
  Receipt Date: 20050930
  Transmission Date: 20060501
  Serious: Yes (Other)
  Sender: FDA-Public Use
  Company Number: 2005AP05223

PATIENT
  Age: 62 Year
  Sex: Female

DRUGS (5)
  1. IRESSA [Suspect]
     Indication: LUNG SQUAMOUS CELL CARCINOMA STAGE UNSPECIFIED
     Route: 048
     Dates: start: 20040923, end: 20041025
  2. IRESSA [Suspect]
     Route: 048
     Dates: start: 20041026, end: 20050930
  3. CARBOPLATIN [Concomitant]
     Dosage: 7 COURSES
  4. PACLITAXEL [Concomitant]
     Dosage: 7 COURSES
  5. DOCETAXEL [Concomitant]
     Dosage: 2 COURSES

REACTIONS (9)
  - ALANINE AMINOTRANSFERASE INCREASED [None]
  - ASPARTATE AMINOTRANSFERASE INCREASED [None]
  - BLOOD ALKALINE PHOSPHATASE INCREASED [None]
  - GAMMA-GLUTAMYLTRANSFERASE INCREASED [None]
  - HEPATIC FUNCTION ABNORMAL [None]
  - HERPES ZOSTER [None]
  - JAUNDICE [None]
  - METASTASES TO CENTRAL NERVOUS SYSTEM [None]
  - RASH [None]
